FAERS Safety Report 23177139 (Version 1)
Quarter: 2023Q4

REPORT INFORMATION
  Report Type: Spontaneous
  Country: US (occurrence: US)
  Receive Date: 20231113
  Receipt Date: 20231113
  Transmission Date: 20240110
  Serious: No
  Sender: FDA-Public Use
  Company Number: US-SA-SAC20231109000662

PATIENT
  Sex: Male
  Weight: 67.13 kg

DRUGS (2)
  1. DUPIXENT [Suspect]
     Active Substance: DUPILUMAB
     Indication: Neurodermatitis
     Dosage: TOOK LOADING DOSE AS SINGLE PEN THEN
     Route: 058
  2. DUPIXENT [Suspect]
     Active Substance: DUPILUMAB
     Dosage: ANOTHER SINGLE PEN 2 WEEKS LATER
     Route: 058

REACTIONS (1)
  - Incorrect dose administered [Unknown]
